FAERS Safety Report 7969518-9 (Version None)
Quarter: 2011Q4

REPORT INFORMATION
  Report Type: 
  Country: None (occurrence: None)
  Receive Date: 20111212
  Receipt Date: 20111201
  Transmission Date: 20120403
  Serious: Yes (Hospitalization)
  Sender: FDA-Public Use
  Company Number: IT-ACCORD-011424

PATIENT
  Sex: Male

DRUGS (8)
  1. RAMIPRIL [Concomitant]
     Indication: HYPERTENSION
  2. ASPIRIN [Concomitant]
  3. NEXIUM [Concomitant]
  4. GLIMEPIRIDE [Suspect]
     Indication: TYPE 2 DIABETES MELLITUS
     Route: 048
     Dates: start: 20100604, end: 20111108
  5. SPIRIVA [Concomitant]
  6. SEREVENT [Concomitant]
  7. LASIX [Concomitant]
  8. ALLOPURINOL [Concomitant]

REACTIONS (1)
  - HYPOGLYCAEMIC COMA [None]
